FAERS Safety Report 8472728-8 (Version None)
Quarter: 2012Q2

REPORT INFORMATION
  Report Type: 
  Country: None (occurrence: None)
  Receive Date: 20120627
  Receipt Date: 20120618
  Transmission Date: 20120825
  Serious: Yes (Hospitalization)
  Sender: FDA-Public Use
  Company Number: US-ASTRAZENECA-2012SE40925

PATIENT
  Sex: Female

DRUGS (2)
  1. BISPHOSPHONATE THERAPY [Concomitant]
  2. CAPRELSA [Suspect]
     Route: 048

REACTIONS (1)
  - GASTROINTESTINAL PERFORATION [None]
